FAERS Safety Report 4962859-9 (Version None)
Quarter: 2006Q2

REPORT INFORMATION
  Report Type: 
  Country: None (occurrence: None)
  Receive Date: 20060403
  Receipt Date: 20060403
  Transmission Date: 20061013
  Serious: Yes (Life-Threatening, Hospitalization, Disabling)
  Sender: FDA-Public Use
  Company Number: None

PATIENT
  Age: 47 Year
  Sex: Female
  Weight: 60.9 kg

DRUGS (10)
  1. VELCADE [Suspect]
     Indication: MULTIPLE MYELOMA
     Dosage: 2 MG    DAY 1, 4, 7,11    IV BOLUS
     Route: 040
     Dates: start: 20060316, end: 20060323
  2. VELCADE [Suspect]
  3. ALLOPURINOL [Concomitant]
  4. FLUCONAZOLE [Concomitant]
  5. VALTREX [Concomitant]
  6. NEXIUM [Concomitant]
  7. SEPTRA [Concomitant]
  8. REGLAN [Concomitant]
  9. MORPHINE [Concomitant]
  10. CLONIDINE HCL [Concomitant]

REACTIONS (6)
  - BLOOD CREATININE INCREASED [None]
  - BLOOD UREA INCREASED [None]
  - CHILLS [None]
  - HAEMODIALYSIS [None]
  - NAUSEA [None]
  - URINE OUTPUT DECREASED [None]
